FAERS Safety Report 8935928 (Version 2)
Quarter: 2012Q4

REPORT INFORMATION
  Report Type: Report from Study
  Country: NL (occurrence: NL)
  Receive Date: 20121130
  Receipt Date: 20121213
  Transmission Date: 20130627
  Serious: Yes (Death, Hospitalization)
  Sender: FDA-Public Use
  Company Number: NL-PFIZER INC-2012296506

PATIENT
  Age: 57 Year
  Sex: Male
  Weight: 62.6 kg

DRUGS (9)
  1. IRINOTECAN HCL [Suspect]
     Indication: METASTATIC COLORECTAL CANCER
     Dosage: 180 mg/m2, on day one every 14 days
     Route: 042
     Dates: start: 20120229, end: 20120801
  2. FLUOROURACIL [Suspect]
     Indication: COLORECTAL CANCER METASTATIC
     Dosage: 400 mg/m2, on day one every 14 days
     Route: 040
     Dates: start: 20120229, end: 20120801
  3. FLUOROURACIL [Suspect]
     Dosage: 2400mg/m2, on days one and two every 14 days
     Route: 042
     Dates: start: 20120229, end: 20120801
  4. FOLINIC ACID [Suspect]
     Indication: COLORECTAL CANCER METASTATIC
     Dosage: 400 mg/m2, on day one every 14 days
     Route: 042
     Dates: start: 20120229, end: 20120801
  5. BLINDED THERAPY [Suspect]
     Indication: COLORECTAL CANCER METASTATIC
     Dosage: UNK
     Route: 042
     Dates: start: 20120229, end: 20120801
  6. PARACETAMOL [Concomitant]
     Indication: PAIN
     Dosage: UNK
     Dates: start: 20120810, end: 20120829
  7. OXYCONTIN [Concomitant]
     Indication: PAIN
     Dosage: UNK
     Dates: start: 20120817, end: 20120829
  8. OXYNORM [Concomitant]
     Indication: PAIN
     Dosage: UNK
     Dates: start: 20120817
  9. FRAGMIN [Concomitant]
     Indication: EMBOLUS PULMONARY
     Dosage: UNK
     Dates: start: 20120810

REACTIONS (3)
  - Death [Fatal]
  - Fall [Recovered/Resolved]
  - Hip fracture [Recovered/Resolved]
